FAERS Safety Report 24170737 (Version 1)
Quarter: 2024Q3

REPORT INFORMATION
  Report Type: Spontaneous
  Country: US (occurrence: None)
  Receive Date: 20240804
  Receipt Date: 20240804
  Transmission Date: 20241017
  Serious: Yes (Other)
  Sender: Public
  Company Number: None

PATIENT
  Sex: Female

DRUGS (5)
  1. TREMFYA [Suspect]
     Active Substance: GUSELKUMAB
     Indication: Psoriasis
     Dosage: OTHER QUANTITY : 1 SYRINGE (100 MG);?FREQUENCY : AS DIRECTED;?
     Route: 058
     Dates: start: 20230922
  2. GABAPENTIN [Concomitant]
  3. MELOXICAM [Concomitant]
  4. PROBIOTIC [Concomitant]
  5. WELLBUTRIN [Concomitant]

REACTIONS (2)
  - Surgery [None]
  - Therapy interrupted [None]
